FAERS Safety Report 20292338 (Version 1)
Quarter: 2022Q1

REPORT INFORMATION
  Report Type: Spontaneous
  Country: JP (occurrence: JP)
  Receive Date: 20220104
  Receipt Date: 20220104
  Transmission Date: 20220423
  Serious: Yes (Death, Other)
  Sender: FDA-Public Use
  Company Number: JP-PFIZER INC-202101286205

PATIENT
  Age: 27 Year
  Sex: Female
  Weight: 96.2 kg

DRUGS (5)
  1. VFEND [Suspect]
     Active Substance: VORICONAZOLE
     Indication: Systemic mycosis
     Dosage: 200 MG, TWICE DAILY
     Route: 048
     Dates: start: 20091202, end: 20091208
  2. MICAFUNGIN SODIUM [Suspect]
     Active Substance: MICAFUNGIN SODIUM
     Dosage: UNK
     Dates: end: 20091201
  3. DORIPENEM MONOHYDRATE [Concomitant]
     Active Substance: DORIPENEM MONOHYDRATE
     Dosage: 0.5 G, 2X/DAY
     Route: 042
     Dates: start: 20091129, end: 20091208
  4. ZOVIRAX [Concomitant]
     Active Substance: ACYCLOVIR
     Dosage: 250 MG, 1X/DAY
     Route: 042
     Dates: start: 20091123, end: 20091208
  5. PREDNISOLONE SODIUM SUCCINATE [Concomitant]
     Active Substance: PREDNISOLONE SODIUM SUCCINATE
     Dosage: 75 MG, 1X/DAY
     Route: 042
     Dates: start: 20091125, end: 20091208

REACTIONS (3)
  - Infection [Fatal]
  - Fungal infection [Fatal]
  - Blood beta-D-glucan increased [Unknown]

NARRATIVE: CASE EVENT DATE: 20091207
